FAERS Safety Report 8838749 (Version 8)
Quarter: 2015Q1

REPORT INFORMATION
  Report Type: Spontaneous
  Country: US (occurrence: US)
  Receive Date: 20121012
  Receipt Date: 20150116
  Transmission Date: 20150721
  Serious: Yes (Death, Life-Threatening, Hospitalization, Disabling, Other)
  Sender: FDA-Public Use
  Company Number: US-009507513-1210USA005876

PATIENT
  Sex: Male
  Weight: 106.58 kg

DRUGS (3)
  1. BYETTA [Suspect]
     Active Substance: EXENATIDE
     Indication: TYPE 2 DIABETES MELLITUS
     Dosage: 5 MICROGRAM, QD
     Route: 048
     Dates: start: 20090430, end: 20101215
  2. BYETTA [Suspect]
     Active Substance: EXENATIDE
     Dosage: 10 MICROGRAM, QD
     Route: 048
     Dates: start: 20090914, end: 20100819
  3. JANUVIA [Suspect]
     Active Substance: SITAGLIPTIN PHOSPHATE
     Indication: TYPE 2 DIABETES MELLITUS
     Dosage: 100 MG, QD
     Route: 048
     Dates: start: 20080922, end: 20090421

REACTIONS (32)
  - Pancreatic carcinoma metastatic [Unknown]
  - Pancytopenia [Unknown]
  - Pancreatitis [Unknown]
  - Hypertension [Unknown]
  - Osteopenia [Unknown]
  - Cholelithiasis [Unknown]
  - Cachexia [Unknown]
  - Platelet count decreased [Unknown]
  - Vomiting [Unknown]
  - Acute kidney injury [Recovered/Resolved]
  - Ulcer [Unknown]
  - Lipoma excision [Unknown]
  - Pulmonary mass [Unknown]
  - Metastases to lung [Unknown]
  - Peritonitis [Fatal]
  - Gastrointestinal disorder [Unknown]
  - Benign prostatic hyperplasia [Unknown]
  - Depression [Unknown]
  - Respiratory failure [Fatal]
  - Fungal peritonitis [Unknown]
  - Colitis [Unknown]
  - Hypercholesterolaemia [Unknown]
  - Back pain [Unknown]
  - Sepsis [Fatal]
  - Hepatic mass [Unknown]
  - Peritonitis bacterial [Unknown]
  - Pleural effusion [Unknown]
  - Hypernatraemia [Unknown]
  - Metastases to liver [Unknown]
  - Appendicectomy [Unknown]
  - Adrenal mass [Unknown]
  - Abnormal loss of weight [Unknown]

NARRATIVE: CASE EVENT DATE: 2009
